FAERS Safety Report 5048107-2 (Version None)
Quarter: 2006Q3

REPORT INFORMATION
  Report Type: 
  Country: None (occurrence: None)
  Receive Date: 20060711
  Receipt Date: 20060317
  Transmission Date: 20061208
  Serious: Yes (Death)
  Sender: FDA-Public Use
  Company Number: 2006UW04637

PATIENT
  Age: 86 Year
  Sex: Female
  Weight: 36.4 kg

DRUGS (9)
  1. SEROQUEL [Suspect]
     Indication: HALLUCINATION
     Dosage: ONE AND ONE HALF TABLET
     Route: 048
     Dates: start: 20050803
  2. SEROQUEL [Suspect]
     Dosage: HALF TABLET
     Route: 048
  3. SEROQUEL [Suspect]
     Dosage: BROKE INTO QUARTER TABLET
     Route: 048
  4. SEROQUEL [Suspect]
     Dosage: 1/16 OF AS TABLET
     Route: 002
  5. MIRAPEX [Concomitant]
     Indication: PARKINSON'S DISEASE
     Dosage: 1/32 OF A TABLET
     Dates: end: 20060315
  6. CARBIDOPA W/LEVODOPA [Concomitant]
     Indication: PARKINSON'S DISEASE
  7. CARBIDOPA W/LEVODOPA [Concomitant]
     Dosage: ONE EIGHT 10/100
  8. REQUIP [Concomitant]
     Indication: PARKINSON'S DISEASE
     Dates: start: 20060316
  9. GELATIN [Concomitant]

REACTIONS (8)
  - DEATH [None]
  - FLUID RETENTION [None]
  - HYPERSENSITIVITY [None]
  - MOOD SWINGS [None]
  - OEDEMA PERIPHERAL [None]
  - PHARYNGEAL OEDEMA [None]
  - REACTION TO DRUG EXCIPIENTS [None]
  - SWELLING FACE [None]
